FAERS Safety Report 17876226 (Version 1)
Quarter: 2020Q2

REPORT INFORMATION
  Report Type: Report from Study
  Country: IT (occurrence: IT)
  Receive Date: 20200609
  Receipt Date: 20200609
  Transmission Date: 20200714
  Serious: Yes (Hospitalization)
  Sender: FDA-Public Use
  Company Number: IT-MYLANLABS-2020M1054664

PATIENT
  Age: 89 Year
  Sex: Female

DRUGS (7)
  1. CLODRON [Concomitant]
  2. IRBESARTAN. [Suspect]
     Active Substance: IRBESARTAN
     Indication: HYPERTENSION
     Dosage: 1 DOSAGE FORM, QD
     Route: 048
     Dates: start: 20200101, end: 20200402
  3. DIBASE [Concomitant]
     Active Substance: CHOLECALCIFEROL
  4. LASIX [Suspect]
     Active Substance: FUROSEMIDE
     Indication: HYPERTENSION
     Dosage: UNK
     Route: 048
     Dates: start: 20200101, end: 20200402
  5. CORDARONE [Concomitant]
     Active Substance: AMIODARONE HYDROCHLORIDE
  6. CARDIOASPIRIN [Concomitant]
     Active Substance: ASPIRIN
     Dosage: UNK
  7. LUVION                             /00252501/ [Concomitant]
     Active Substance: CANRENOIC ACID

REACTIONS (1)
  - Hyperuricaemia [Unknown]
